FAERS Safety Report 8551648-4 (Version None)
Quarter: 2012Q3

REPORT INFORMATION
  Report Type: 
  Country: None (occurrence: None)
  Receive Date: 20120730
  Receipt Date: 20120723
  Transmission Date: 20120928
  Serious: No
  Sender: FDA-Public Use
  Company Number: US-PFIZER INC-2012175878

PATIENT
  Sex: Male
  Weight: 91.61 kg

DRUGS (3)
  1. HUMULIN R [Concomitant]
     Indication: DIABETES MELLITUS
     Dosage: 40 UNITS, 2X/DAY
  2. HUMALOG [Concomitant]
     Indication: DIABETES MELLITUS
     Dosage: 40 UNITS DAILY IN THE MORNING
  3. VIAGRA [Suspect]
     Indication: SEXUAL DYSFUNCTION
     Dosage: 100 MG, AS NEEDED
     Route: 048

REACTIONS (1)
  - DRUG INEFFECTIVE [None]
